FAERS Safety Report 4631399-9 (Version None)
Quarter: 2005Q2

REPORT INFORMATION
  Report Type: 
  Country: None (occurrence: None)
  Receive Date: 20050407
  Receipt Date: 20050324
  Transmission Date: 20051028
  Serious: Yes (Life-Threatening, Hospitalization)
  Sender: FDA-Public Use
  Company Number: 213364

PATIENT
  Age: 64 Year
  Sex: Male
  Weight: 63.5 kg

DRUGS (1)
  1. RITUXAN [Suspect]
     Indication: WALDENSTROM'S MACROGLOBULINAEMIA
     Dosage: 680 MG, 1/WEEK, INTRAVENOUS
     Route: 042

REACTIONS (7)
  - BLOOD PRESSURE DECREASED [None]
  - FEELING HOT [None]
  - HEART RATE INCREASED [None]
  - HEPATIC FAILURE [None]
  - HYPERHIDROSIS [None]
  - INFUSION RELATED REACTION [None]
  - PLATELET COUNT DECREASED [None]
